FAERS Safety Report 26136868 (Version 2)
Quarter: 2025Q4

REPORT INFORMATION
  Report Type: Spontaneous
  Country: EU (occurrence: EU)
  Receive Date: 20251209
  Receipt Date: 20251215
  Transmission Date: 20260117
  Serious: Yes (Other)
  Sender: MYLAN
  Company Number: EU-002147023-NVSC2025FR182119

PATIENT
  Age: 73 Year
  Sex: Male

DRUGS (2)
  1. DEXAMETHASONE [Suspect]
     Active Substance: DEXAMETHASONE
     Indication: Transplant rejection
     Dosage: UNK, QD,(DAILY, TOPICAL)
     Dates: start: 2019
  2. CYCLOSPORINE [Suspect]
     Active Substance: CYCLOSPORINE
     Indication: Transplant rejection
     Dosage: UNK,(DAILY, TOPICAL)

REACTIONS (1)
  - Iatrogenic Kaposi sarcoma [Unknown]
